FAERS Safety Report 24717855 (Version 1)
Quarter: 2024Q4

REPORT INFORMATION
  Report Type: Report from Study
  Country: DE (occurrence: DE)
  Receive Date: 20241210
  Receipt Date: 20241210
  Transmission Date: 20250114
  Serious: Yes (Hospitalization, Other)
  Sender: ABBVIE
  Company Number: DE-ABBVIE-6039112

PATIENT
  Age: 80 Year
  Sex: Female

DRUGS (1)
  1. FOSCARBIDOPA\FOSLEVODOPA [Suspect]
     Active Substance: FOSCARBIDOPA\FOSLEVODOPA
     Indication: Parkinson^s disease
     Dosage: SD: 0.50 ML, CRN: 0.15 ML/H, CR: 0.15 ML/H, CRH: 0.23 ML/H, ED: 0.20 ML
     Route: 058
     Dates: start: 20240517

REACTIONS (4)
  - Ligament rupture [Unknown]
  - Fall [Unknown]
  - Hyperkinesia [Unknown]
  - Joint injury [Unknown]

NARRATIVE: CASE EVENT DATE: 20240101
